FAERS Safety Report 23153313 (Version 1)
Quarter: 2023Q4

REPORT INFORMATION
  Report Type: Spontaneous
  Country: US (occurrence: None)
  Receive Date: 20231106
  Receipt Date: 20231106
  Transmission Date: 20240109
  Serious: Yes (Other)
  Sender: FDA-Public Use
  Company Number: None

PATIENT
  Age: 87 Year
  Sex: Male
  Weight: 71.1 kg

DRUGS (13)
  1. ASTEPRO [Suspect]
     Active Substance: AZELASTINE HYDROCHLORIDE
     Indication: Multiple allergies
     Dosage: FREQUENCY : AS NEEDED;?OTHER ROUTE : NASAL SPRAY;?
     Route: 050
     Dates: start: 20230901, end: 20231101
  2. BRILINTA [Concomitant]
     Active Substance: TICAGRELOR
  3. METOPROLOL [Concomitant]
     Active Substance: METOPROLOL
  4. PANTOPRAZOLE [Concomitant]
     Active Substance: PANTOPRAZOLE
  5. HYDROCHLOROTHIAZIDE [Concomitant]
     Active Substance: HYDROCHLOROTHIAZIDE
  6. PRAVASTATIN [Concomitant]
     Active Substance: PRAVASTATIN
  7. UNSPECIFIED INGREDIENT [Concomitant]
     Active Substance: UNSPECIFIED INGREDIENT
  8. Hydrocod/Acetam [Concomitant]
  9. MINERALS\VITAMINS [Concomitant]
     Active Substance: MINERALS\VITAMINS
  10. VITAMIN D3 [Concomitant]
     Active Substance: CHOLECALCIFEROL
  11. MELATONIN [Concomitant]
     Active Substance: MELATONIN
  12. COLACE [Concomitant]
     Active Substance: DOCUSATE SODIUM
  13. BENADRYL [Concomitant]
     Active Substance: DIPHENHYDRAMINE HYDROCHLORIDE

REACTIONS (9)
  - Therapy cessation [None]
  - Oral discomfort [None]
  - Stomatitis [None]
  - Dry mouth [None]
  - Dysgeusia [None]
  - Cough [None]
  - Sneezing [None]
  - Upper-airway cough syndrome [None]
  - Lacrimation increased [None]

NARRATIVE: CASE EVENT DATE: 20230901
